FAERS Safety Report 25015277 (Version 4)
Quarter: 2025Q2

REPORT INFORMATION
  Report Type: Report from Study
  Country: CA (occurrence: CA)
  Receive Date: 20250226
  Receipt Date: 20250414
  Transmission Date: 20250716
  Serious: Yes (Death, Hospitalization)
  Sender: ABBVIE
  Company Number: CA-ABBVIE-6053469

PATIENT
  Age: 58 Year
  Sex: Female

DRUGS (5)
  1. VYALEV [Suspect]
     Active Substance: FOSCARBIDOPA\FOSLEVODOPA
     Indication: Product used for unknown indication
     Route: 058
     Dates: start: 20241125
  2. VYALEV [Suspect]
     Active Substance: FOSCARBIDOPA\FOSLEVODOPA
     Route: 058
     Dates: start: 20241213
  3. VYALEV [Suspect]
     Active Substance: FOSCARBIDOPA\FOSLEVODOPA
     Route: 058
  4. CARBIDOPA\ENTACAPONE\LEVODOPA [Concomitant]
     Active Substance: CARBIDOPA\ENTACAPONE\LEVODOPA
     Indication: Product used for unknown indication
  5. CARBIDOPA AND LEVODOPA [Concomitant]
     Active Substance: CARBIDOPA\LEVODOPA
     Indication: Product used for unknown indication

REACTIONS (21)
  - Death [Fatal]
  - Injection site erythema [Unknown]
  - Infusion site erythema [Unknown]
  - Catheter site haematoma [Recovered/Resolved]
  - Catheter site erythema [Recovered/Resolved]
  - Hallucination [Unknown]
  - Catheter site nodule [Unknown]
  - Catheter site granuloma [Unknown]
  - Catheter site mass [Unknown]
  - Catheter site erythema [Unknown]
  - Device kink [Unknown]
  - Hallucination, tactile [Unknown]
  - Hallucination, auditory [Unknown]
  - Hallucination, visual [Unknown]
  - Constipation [Unknown]
  - Urinary tract infection [Unknown]
  - Injection site haematoma [Unknown]
  - Parkinson^s disease [Unknown]
  - Hallucination [Unknown]
  - Hypophagia [Unknown]
  - Pneumonia [Unknown]

NARRATIVE: CASE EVENT DATE: 20240101
